FAERS Safety Report 14630877 (Version 4)
Quarter: 2020Q3

REPORT INFORMATION
  Report Type: Report from Study
  Country: CN (occurrence: CN)
  Receive Date: 20180313
  Receipt Date: 20181207
  Transmission Date: 20201104
  Serious: Yes (Hospitalization)
  Sender: FDA-Public Use
  Company Number: CN-JNJFOC-20180309765

PATIENT
  Age: 62 Year
  Sex: Male
  Weight: 57 kg

DRUGS (2)
  1. IBRUTINIB [Suspect]
     Active Substance: IBRUTINIB
     Indication: CHRONIC LYMPHOCYTIC LEUKAEMIA
     Route: 048
     Dates: start: 20170505, end: 20170506
  2. IBRUTINIB [Suspect]
     Active Substance: IBRUTINIB
     Indication: CHRONIC LYMPHOCYTIC LEUKAEMIA
     Dosage: 5?MAY?2017 IBRUTINIB START BUT, DUE TO ABSOLUTE NEUTROPHIL AT 3 AE STANDARD,IT STOPPED ON 6?MAY?2017
     Route: 048
     Dates: start: 20170616, end: 20180305

REACTIONS (1)
  - Cerebral haemorrhage [Recovered/Resolved with Sequelae]

NARRATIVE: CASE EVENT DATE: 20180302
